FAERS Safety Report 4496746-X (Version None)
Quarter: 2004Q3

REPORT INFORMATION
  Report Type: 
  Country: None (occurrence: None)
  Receive Date: 20040928
  Receipt Date: 20031029
  Transmission Date: 20050211
  Serious: Yes (Life-Threatening, Hospitalization, Disabling, Other)
  Sender: FDA-Public Use
  Company Number: C2003-2854.01

PATIENT
  Sex: Female

DRUGS (2)
  1. PIROXICAM [Suspect]
     Indication: BACK PAIN
     Dosage: ORAL
     Route: 048
  2. PIROXICAM [Suspect]
     Indication: EPICONDYLITIS
     Dosage: ORAL
     Route: 048

REACTIONS (4)
  - BLINDNESS [None]
  - DEAFNESS [None]
  - STEVENS-JOHNSON SYNDROME [None]
  - TOXIC EPIDERMAL NECROLYSIS [None]
